FAERS Safety Report 21655887 (Version 2)
Quarter: 2023Q1

REPORT INFORMATION
  Report Type: Report from Study
  Country: BG (occurrence: BG)
  Receive Date: 20221129
  Receipt Date: 20230114
  Transmission Date: 20230418
  Serious: Yes (Death)
  Sender: FDA-Public Use
  Company Number: BG-ABBVIE-4216466

PATIENT
  Age: 65 Year
  Sex: Female

DRUGS (1)
  1. RINVOQ [Suspect]
     Active Substance: UPADACITINIB
     Indication: Product used for unknown indication
     Dosage: COVID-19 INFECTION OCCURRED IN 2022
     Route: 048
     Dates: start: 202207

REACTIONS (1)
  - COVID-19 [Fatal]
